FAERS Safety Report 17098706 (Version 1)
Quarter: 2019Q4

REPORT INFORMATION
  Report Type: Spontaneous
  Country: CN (occurrence: CN)
  Receive Date: 20191202
  Receipt Date: 20191202
  Transmission Date: 20200122
  Serious: Yes (Other)
  Sender: FDA-Public Use
  Company Number: CN-ROCHE-2481478

PATIENT
  Age: 62 Year
  Sex: Male
  Weight: 78 kg

DRUGS (3)
  1. MABTHERA [Suspect]
     Active Substance: RITUXIMAB
     Indication: B-CELL LYMPHOMA
     Dosage: 100MG IN FIRST INFUSION FLUID BAG
     Route: 041
     Dates: start: 20191113, end: 20191113
  2. MABTHERA [Suspect]
     Active Substance: RITUXIMAB
     Dosage: 700MG OF REMAINING RITUXIMAB
     Route: 041
     Dates: start: 20191113, end: 20191113
  3. SODIUM CHLORIDE. [Concomitant]
     Active Substance: SODIUM CHLORIDE
     Dosage: SOLVENT FOR 100MG RITUXIMAB
     Route: 041
     Dates: start: 20191113, end: 20191113

REACTIONS (1)
  - Anaphylactoid reaction [Recovered/Resolved]

NARRATIVE: CASE EVENT DATE: 20191113
